FAERS Safety Report 7060359-6 (Version None)
Quarter: 2010Q4

REPORT INFORMATION
  Report Type: 
  Country: None (occurrence: None)
  Receive Date: 20101025
  Receipt Date: 20101013
  Transmission Date: 20110411
  Serious: Yes (Hospitalization)
  Sender: FDA-Public Use
  Company Number: B0680468A

PATIENT
  Age: 68 Year
  Sex: Female

DRUGS (18)
  1. AUGMENTIN '125' [Suspect]
     Route: 048
     Dates: start: 20100801, end: 20100101
  2. METHOTREXATE SODIUM [Suspect]
     Route: 030
  3. PREDNISOLON [Suspect]
     Dosage: 10MG PER DAY
     Route: 048
     Dates: start: 20100401
  4. HUMIRA [Suspect]
     Route: 040
     Dates: start: 20100401, end: 20100811
  5. TOREM [Suspect]
     Indication: ESSENTIAL HYPERTENSION
     Dosage: 20MG THREE TIMES PER DAY
     Route: 048
  6. PONSTAN [Suspect]
     Route: 048
     Dates: end: 20100911
  7. IRFEN [Suspect]
     Dosage: 800MG PER DAY
     Route: 048
     Dates: end: 20100911
  8. DIFLUCAN [Suspect]
     Indication: CANDIDIASIS
     Route: 065
     Dates: start: 20100901, end: 20100901
  9. ASPIRIN [Concomitant]
     Indication: PRODUCT USED FOR UNKNOWN INDICATION
     Dosage: 100MG PER DAY
     Route: 048
     Dates: end: 20100911
  10. METOPROLOL TARTRATE [Concomitant]
     Indication: PRODUCT USED FOR UNKNOWN INDICATION
     Dosage: 25MG TWICE PER DAY
     Route: 048
  11. BEROCCA C [Concomitant]
     Indication: PRODUCT USED FOR UNKNOWN INDICATION
     Route: 048
     Dates: end: 20100911
  12. COZAAR [Concomitant]
     Indication: PRODUCT USED FOR UNKNOWN INDICATION
     Dosage: 100MG PER DAY
     Route: 048
  13. EUTHYROX [Concomitant]
     Indication: PRODUCT USED FOR UNKNOWN INDICATION
     Dosage: 75MCG PER DAY
     Route: 048
  14. JANUMET [Concomitant]
     Indication: PRODUCT USED FOR UNKNOWN INDICATION
     Dosage: 50MG TWICE PER DAY
     Route: 048
     Dates: end: 20100911
  15. POTASSIUM CHLORIDE [Concomitant]
     Indication: PRODUCT USED FOR UNKNOWN INDICATION
     Route: 048
  16. PANTOPRAZOLE SODIUM [Concomitant]
     Indication: PRODUCT USED FOR UNKNOWN INDICATION
     Dosage: 40MG PER DAY
     Route: 048
  17. SORTIS [Concomitant]
     Indication: PRODUCT USED FOR UNKNOWN INDICATION
     Dosage: 20MG PER DAY
     Route: 048
  18. FOLIC ACID [Concomitant]
     Indication: PRODUCT USED FOR UNKNOWN INDICATION
     Dosage: 5MG WEEKLY
     Route: 048
     Dates: end: 20100901

REACTIONS (24)
  - ARRHYTHMIA [None]
  - ATRIAL FIBRILLATION [None]
  - CANDIDIASIS [None]
  - CHEILITIS [None]
  - DRUG ERUPTION [None]
  - DYSURIA [None]
  - EPISTAXIS [None]
  - FUNGAL INFECTION [None]
  - HAEMOGLOBIN DECREASED [None]
  - HYPOTENSION [None]
  - HYPOTONIA [None]
  - LABELLED DRUG-DRUG INTERACTION MEDICATION ERROR [None]
  - MUCOSAL DISCOLOURATION [None]
  - ODYNOPHAGIA [None]
  - PANCYTOPENIA [None]
  - PETECHIAE [None]
  - PURPURA [None]
  - RASH [None]
  - RASH MACULO-PAPULAR [None]
  - RENAL FAILURE ACUTE [None]
  - RENAL FAILURE CHRONIC [None]
  - STOMATITIS [None]
  - SUPRAVENTRICULAR TACHYCARDIA [None]
  - VERTIGO [None]
